FAERS Safety Report 8106837-X (Version None)
Quarter: 2012Q1

REPORT INFORMATION
  Report Type: 
  Country: None (occurrence: None)
  Receive Date: 20120202
  Receipt Date: 20120125
  Transmission Date: 20120608
  Serious: Yes (Hospitalization)
  Sender: FDA-Public Use
  Company Number: US-ASTELLAS-2012US000984

PATIENT
  Sex: Male
  Weight: 73 kg

DRUGS (5)
  1. DASATINIB [Suspect]
     Indication: NON-SMALL CELL LUNG CANCER METASTATIC
     Dosage: 20 MG, UID/QD
     Route: 048
     Dates: start: 20110506, end: 20120123
  2. ANTIBIOTICS [Concomitant]
     Indication: PRODUCT USED FOR UNKNOWN INDICATION
     Dosage: UNK
     Route: 065
  3. LACTULOSE [Concomitant]
     Indication: CONSTIPATION
     Dosage: UNK
     Route: 065
  4. DASATINIB [Suspect]
     Dosage: 50 MG, UID/QD
     Route: 048
     Dates: start: 20110506, end: 20120123
  5. ERLOTINIB HYDROCHLORIDE [Suspect]
     Indication: NON-SMALL CELL LUNG CANCER METASTATIC
     Dosage: 150 MG, UID/QD
     Route: 048
     Dates: start: 20110506, end: 20120123

REACTIONS (9)
  - LIPASE INCREASED [None]
  - ABDOMINAL PAIN UPPER [None]
  - ATELECTASIS [None]
  - PROSTATOMEGALY [None]
  - PLEURAL EFFUSION [None]
  - GALLBLADDER DISORDER [None]
  - AMYLASE INCREASED [None]
  - DYSPNOEA EXERTIONAL [None]
  - BILIARY DILATATION [None]
